FAERS Safety Report 21407032 (Version 2)
Quarter: 2022Q4

REPORT INFORMATION
  Report Type: Spontaneous
  Country: US (occurrence: US)
  Receive Date: 20221004
  Receipt Date: 20221230
  Transmission Date: 20230113
  Serious: No
  Sender: FDA-Public Use
  Company Number: US-PFIZER INC-202201177568

PATIENT
  Age: 14 Year
  Sex: Female
  Weight: 52 kg

DRUGS (6)
  1. PAXLOVID [Interacting]
     Active Substance: NIRMATRELVIR\RITONAVIR
     Indication: Epstein-Barr viraemia
     Dosage: [PF-07321332 300MG]/[RITONAVIR 100 MG], 2X/DAY
     Route: 048
  2. PAXLOVID [Interacting]
     Active Substance: NIRMATRELVIR\RITONAVIR
     Indication: COVID-19 treatment
  3. TACROLIMUS [Interacting]
     Active Substance: TACROLIMUS
     Indication: Immunosuppressant drug therapy
     Dosage: 2.5 MG, 2X/DAY
     Route: 048
  4. TACROLIMUS [Interacting]
     Active Substance: TACROLIMUS
     Dosage: 1 MG (123 H OR 5 DAYS AFTER HOLDING THE TACROLIMUS)
     Route: 048
  5. TACROLIMUS [Interacting]
     Active Substance: TACROLIMUS
     Dosage: 2.5 MG, 2X/DAY
     Route: 048
  6. TACROLIMUS [Interacting]
     Active Substance: TACROLIMUS
     Dosage: 4.5 MG, DAILY (DECREASED TO 2.5 MG/2 MG)
     Route: 048

REACTIONS (9)
  - Drug interaction [Unknown]
  - Labelled drug-drug interaction medication error [Unknown]
  - Blood creatinine increased [Unknown]
  - Immunosuppressant drug level increased [Unknown]
  - Intentional product use issue [Unknown]
  - Off label use [Unknown]
  - Drug level above therapeutic [Recovered/Resolved]
  - Off label use [Unknown]
  - Product use issue [Unknown]
